FAERS Safety Report 5973501-2 (Version None)
Quarter: 2008Q4

REPORT INFORMATION
  Report Type: 
  Country: None (occurrence: None)
  Receive Date: 20081201
  Receipt Date: 20081120
  Transmission Date: 20090506
  Serious: Yes (Other)
  Sender: FDA-Public Use
  Company Number: CH-AVENTIS-200816349EU

PATIENT
  Age: 69 Year
  Sex: Male
  Weight: 100.7 kg

DRUGS (8)
  1. CLEXANE [Suspect]
     Route: 058
     Dates: start: 20081011, end: 20081011
  2. ARIXTRA [Concomitant]
     Route: 058
     Dates: start: 20081010
  3. CORDARONE [Concomitant]
     Route: 048
     Dates: start: 20080929
  4. DAFALGAN                           /00020001/ [Concomitant]
     Route: 048
     Dates: start: 20081007
  5. DISTRANEURIN                       /00027502/ [Concomitant]
     Route: 048
     Dates: start: 20081009
  6. NEXIUM [Concomitant]
     Route: 048
     Dates: start: 20080929
  7. SINTROM [Concomitant]
     Route: 048
     Dates: start: 20081010
  8. TORASIS [Concomitant]
     Route: 048
     Dates: start: 20081011

REACTIONS (1)
  - MEDICATION ERROR [None]
